FAERS Safety Report 8333342-8 (Version None)
Quarter: 2012Q2

REPORT INFORMATION
  Report Type: 
  Country: None (occurrence: None)
  Receive Date: 20120503
  Receipt Date: 20120426
  Transmission Date: 20120825
  Serious: Yes (Hospitalization, Other)
  Sender: FDA-Public Use
  Company Number: JP-PFIZER INC-2012076596

PATIENT
  Sex: Female
  Weight: 2.572 kg

DRUGS (9)
  1. LEVOTOMIN [Suspect]
     Indication: INSOMNIA
     Dosage: UNK
     Route: 064
  2. ZOLOFT [Suspect]
     Dosage: 200 MG, UNK
     Route: 064
  3. ZOLOFT [Suspect]
     Dosage: 50 MG, 2X/DAY
     Route: 064
     Dates: start: 20120306, end: 20120319
  4. FLUVOXAMINE MALEATE [Suspect]
     Indication: OBSESSIVE-COMPULSIVE DISORDER
     Dosage: UNK
     Route: 064
  5. LUVOX [Suspect]
     Indication: OBSESSIVE-COMPULSIVE DISORDER
     Dosage: 75 MG, 1X/DAY
     Route: 064
     Dates: start: 20120228, end: 20120305
  6. ZOLOFT [Suspect]
     Indication: DEPRESSION
     Dosage: UNK
     Route: 064
  7. FLUVOXAMINE MALEATE [Suspect]
     Dosage: 150 MG, 1X/DAY
     Route: 064
     Dates: start: 20120306, end: 20120319
  8. LEVOTOMIN [Suspect]
     Dosage: 75 MG, 1X/DAY
     Route: 064
     Dates: start: 20120306, end: 20120319
  9. ZOLOFT [Suspect]
     Dosage: 75 MG, 1X/DAY
     Route: 064
     Dates: start: 20120228, end: 20120305

REACTIONS (6)
  - CONVULSION NEONATAL [None]
  - MATERNAL EXPOSURE TIMING UNSPECIFIED [None]
  - DRUG WITHDRAWAL SYNDROME NEONATAL [None]
  - RESPIRATORY DISORDER NEONATAL [None]
  - INFANTILE APNOEIC ATTACK [None]
  - HYPOTONIA NEONATAL [None]
